FAERS Safety Report 25592130 (Version 2)
Quarter: 2025Q3

REPORT INFORMATION
  Report Type: Spontaneous
  Country: EU (occurrence: EU)
  Receive Date: 20250722
  Receipt Date: 20250725
  Transmission Date: 20251020
  Serious: Yes (Hospitalization, Other)
  Sender: TAKEDA
  Company Number: EU-JNJFOC-20250512409

PATIENT
  Age: 68 Year

DRUGS (10)
  1. VELCADE [Suspect]
     Active Substance: BORTEZOMIB
     Indication: Plasma cell myeloma
  2. VELCADE [Suspect]
     Active Substance: BORTEZOMIB
  3. VELCADE [Suspect]
     Active Substance: BORTEZOMIB
  4. VELCADE [Suspect]
     Active Substance: BORTEZOMIB
  5. DEXAMETHASONE [Suspect]
     Active Substance: DEXAMETHASONE
     Indication: Plasma cell myeloma
  6. DARZALEX [Suspect]
     Active Substance: DARATUMUMAB
     Indication: Plasma cell myeloma
  7. LENALIDOMIDE [Suspect]
     Active Substance: LENALIDOMIDE
     Indication: Plasma cell myeloma
  8. TOLODODEKIN ALFA [Concomitant]
     Active Substance: TOLODODEKIN ALFA
     Indication: Plasma cell myeloma
  9. LENALIDOMIDE [Concomitant]
     Active Substance: LENALIDOMIDE
     Indication: Plasma cell myeloma
  10. DEXAMETHASONE [Concomitant]
     Active Substance: DEXAMETHASONE
     Indication: Plasma cell myeloma

REACTIONS (3)
  - Neurotoxicity [Recovering/Resolving]
  - Diarrhoea [Recovered/Resolved]
  - Autonomic neuropathy [Recovered/Resolved]
